FAERS Safety Report 20491635 (Version 2)
Quarter: 2022Q1

REPORT INFORMATION
  Report Type: Spontaneous
  Country: BR (occurrence: BR)
  Receive Date: 20220218
  Receipt Date: 20220303
  Transmission Date: 20220423
  Serious: Yes (Other)
  Sender: FDA-Public Use
  Company Number: BR-AMERICAN REGENT INC-2022000395

PATIENT
  Weight: 70 kg

DRUGS (4)
  1. VENOFER [Suspect]
     Active Substance: IRON SUCROSE
     Indication: Product used for unknown indication
     Dosage: UNK
     Route: 042
     Dates: start: 202201, end: 2022
  2. IRON POLYMALTOSE [Suspect]
     Active Substance: IRON POLYMALTOSE
     Indication: Product used for unknown indication
     Dosage: UNK
     Route: 065
     Dates: start: 2022, end: 2022
  3. IRON POLYMALTOSE [Suspect]
     Active Substance: IRON POLYMALTOSE
     Indication: Product used for unknown indication
     Dosage: UNK
     Route: 030
     Dates: start: 202201, end: 2022
  4. BARISTAR [Concomitant]
     Indication: Mineral supplementation
     Dosage: UNK
     Route: 065

REACTIONS (3)
  - Vein rupture [Not Recovered/Not Resolved]
  - Malabsorption [Not Recovered/Not Resolved]
  - Therapy cessation [Not Recovered/Not Resolved]

NARRATIVE: CASE EVENT DATE: 20220101
